FAERS Safety Report 7329940-0 (Version None)
Quarter: 2011Q1

REPORT INFORMATION
  Report Type: 
  Country: None (occurrence: None)
  Receive Date: 20110303
  Receipt Date: 20110228
  Transmission Date: 20110831
  Serious: Yes (Other)
  Sender: FDA-Public Use
  Company Number: US-PFIZER INC-2010169833

PATIENT
  Sex: Female

DRUGS (4)
  1. METOPROLOL [Concomitant]
     Indication: HYPERTENSION
     Dosage: UNK
  2. LIPITOR [Suspect]
     Indication: HYPERLIPIDAEMIA
     Dosage: 80 MG, 1X/DAY, AT BEDTIME
     Route: 048
     Dates: start: 20051101, end: 20101101
  3. ACETYLSALICYLIC ACID [Concomitant]
     Dosage: UNK, DAILY
  4. OMEPRAZOLE [Concomitant]
     Indication: GASTROOESOPHAGEAL REFLUX DISEASE
     Dosage: UNK

REACTIONS (4)
  - MUSCLE SPASMS [None]
  - DYSAESTHESIA [None]
  - CATARACT OPERATION [None]
  - PAIN IN EXTREMITY [None]
